FAERS Safety Report 9358841 (Version 2)
Quarter: 2017Q2

REPORT INFORMATION
  Report Type: Spontaneous
  Country: CN (occurrence: CN)
  Receive Date: 20130620
  Receipt Date: 20170522
  Transmission Date: 20170830
  Serious: Yes (Other)
  Sender: FDA-Public Use
  Company Number: CN-PFIZER INC-2013181479

PATIENT
  Age: 16 Year
  Sex: Male
  Weight: 40 kg

DRUGS (2)
  1. ZYVOX [Suspect]
     Active Substance: LINEZOLID
     Indication: ANTI-INFECTIVE THERAPY
     Dosage: 0.6 G, TWICE DAILY
     Route: 041
     Dates: start: 20120406, end: 20120407
  2. SULPERAZON [Concomitant]
     Active Substance: CEFOPERAZONE SODIUM\SULBACTAM SODIUM
     Indication: ANTI-INFECTIVE THERAPY
     Dosage: 3 G, THRICE DAILY
     Route: 041
     Dates: start: 20120405, end: 20120521

REACTIONS (3)
  - Generalised tonic-clonic seizure [Recovered/Resolved]
  - Tic [Recovered/Resolved]
  - Petit mal epilepsy [Recovered/Resolved]

NARRATIVE: CASE EVENT DATE: 20120407
